FAERS Safety Report 6061085-2 (Version None)
Quarter: 2009Q1

REPORT INFORMATION
  Report Type: 
  Country: None (occurrence: None)
  Receive Date: 20090202
  Receipt Date: 20090120
  Transmission Date: 20090719
  Serious: Yes (Death, Other)
  Sender: FDA-Public Use
  Company Number: JP-ABBOTT-09P-087-0500604-00

PATIENT
  Age: 80 Year
  Sex: Male

DRUGS (5)
  1. LEUPROLIDE ACETATE [Suspect]
     Indication: PROSTATE CANCER STAGE II
     Route: 058
     Dates: start: 20070105, end: 20080516
  2. CASODEX [Concomitant]
     Indication: PROSTATE CANCER STAGE II
     Route: 048
     Dates: start: 20060929, end: 20070524
  3. AMLODIPINE [Concomitant]
     Indication: HYPERTENSION
     Route: 048
     Dates: end: 20080626
  4. OXYCONTIN [Concomitant]
     Indication: CANCER PAIN
     Route: 048
     Dates: start: 20071025, end: 20080626
  5. LASIX [Concomitant]
     Indication: OEDEMA
     Route: 048
     Dates: start: 20080108, end: 20080626

REACTIONS (3)
  - MALIGNANT NEOPLASM OF RENAL PELVIS [None]
  - METASTASES TO LIVER [None]
  - METASTASES TO LYMPH NODES [None]
